FAERS Safety Report 6762634-9 (Version None)
Quarter: 2010Q2

REPORT INFORMATION
  Report Type: 
  Country: None (occurrence: None)
  Receive Date: 20100609
  Receipt Date: 20100526
  Transmission Date: 20101027
  Serious: No
  Sender: FDA-Public Use
  Company Number: US-B.I. PHARMACEUTICALS,INC./RIDGEFIELD-2010-BP-05947BP

PATIENT
  Sex: Female

DRUGS (2)
  1. FLOMAX [Suspect]
     Indication: MICTURITION URGENCY
     Route: 048
  2. FLOMAX [Suspect]
     Route: 048
     Dates: start: 20100401, end: 20100417

REACTIONS (5)
  - DRUG INEFFECTIVE [None]
  - FUNGAL INFECTION [None]
  - GENITAL RASH [None]
  - RASH [None]
  - SKIN IRRITATION [None]
